FAERS Safety Report 8437882-2 (Version None)
Quarter: 2012Q2

REPORT INFORMATION
  Report Type: 
  Country: None (occurrence: None)
  Receive Date: 20120323
  Receipt Date: 20110620
  Transmission Date: 20120825
  Serious: Yes (Hospitalization)
  Sender: FDA-Public Use
  Company Number: 163-21880-11062515

PATIENT
  Sex: Male
  Weight: 74.6167 kg

DRUGS (15)
  1. OXYCONTIN [Concomitant]
  2. ASPIRIN [Concomitant]
  3. LENALIDOMIDE [Suspect]
     Indication: MULTIPLE MYELOMA
     Dosage: 15 MG, QD, PO  : 5 MG, 1 IN 1 D, PO
     Route: 048
     Dates: start: 20110501
  4. LENALIDOMIDE [Suspect]
     Indication: MULTIPLE MYELOMA
     Dosage: 15 MG, QD, PO  : 5 MG, 1 IN 1 D, PO
     Route: 048
     Dates: start: 20110329, end: 20110421
  5. GABAPENTIN [Concomitant]
  6. OXYCODONE-ACETAMINOPHEN (OXYCOCET) [Concomitant]
  7. PHENERGAN [Concomitant]
  8. ZOMETA [Concomitant]
  9. ATENOLOL [Concomitant]
  10. NAPROXEN (ALEVE) [Concomitant]
  11. PERCOCET [Concomitant]
  12. PLAVIX [Concomitant]
  13. ATIVAN [Concomitant]
  14. PROCHLORPERAZINE MALEATE [Concomitant]
  15. PRINIVIL [Concomitant]

REACTIONS (1)
  - PNEUMONIA [None]
